FAERS Safety Report 8315554-2 (Version None)
Quarter: 2012Q2

REPORT INFORMATION
  Report Type: 
  Country: None (occurrence: None)
  Receive Date: 20120426
  Receipt Date: 20120412
  Transmission Date: 20120825
  Serious: Yes (Other)
  Sender: FDA-Public Use
  Company Number: JP-PFIZER INC-2012097302

PATIENT
  Age: 67 Year
  Sex: Male

DRUGS (5)
  1. AMARYL [Concomitant]
     Dosage: UNK
     Dates: start: 20100817
  2. MIGLITOL [Suspect]
     Indication: DIABETES MELLITUS
     Dosage: 50 MG, 3X/DAY
     Route: 048
     Dates: start: 20100817, end: 20120222
  3. MIROBECT [Concomitant]
     Dosage: UNK
     Dates: start: 20100817
  4. JANUVIA [Concomitant]
     Dosage: UNK
     Dates: start: 20100817
  5. ADALAT [Concomitant]
     Dosage: UNK
     Dates: start: 20100817

REACTIONS (1)
  - PNEUMATOSIS INTESTINALIS [None]
